FAERS Safety Report 24590354 (Version 2)
Quarter: 2024Q4

REPORT INFORMATION
  Report Type: Report from Study
  Country: MX (occurrence: MX)
  Receive Date: 20241107
  Receipt Date: 20241129
  Transmission Date: 20250115
  Serious: Yes (Other)
  Sender: ALEXION PHARMACEUTICALS
  Company Number: MX-AstraZeneca-2024A141957

PATIENT
  Age: 184 Day
  Weight: 7 kg

DRUGS (23)
  1. ESOMEPRAZOLE [Suspect]
     Active Substance: ESOMEPRAZOLE
     Indication: Product used for unknown indication
     Dosage: 2.5 UNK
  2. ESOMEPRAZOLE [Suspect]
     Active Substance: ESOMEPRAZOLE
     Dosage: 2.5 UNK
  3. ESOMEPRAZOLE [Suspect]
     Active Substance: ESOMEPRAZOLE
     Dosage: 2.5 UNK
  4. ESOMEPRAZOLE [Suspect]
     Active Substance: ESOMEPRAZOLE
     Dosage: 2.5 UNK
  5. PALIVIZUMAB [Suspect]
     Active Substance: PALIVIZUMAB
     Dosage: 108 MILLIGRAM/1 ML
  6. PALIVIZUMAB [Suspect]
     Active Substance: PALIVIZUMAB
     Dosage: 108 MILLIGRAM/1 ML
  7. PALIVIZUMAB [Suspect]
     Active Substance: PALIVIZUMAB
     Dosage: 108 MILLIGRAM/1 ML
  8. PALIVIZUMAB [Suspect]
     Active Substance: PALIVIZUMAB
     Dosage: 108 MILLIGRAM/1 ML
  9. PALIVIZUMAB [Suspect]
     Active Substance: PALIVIZUMAB
     Dosage: 1 MILLILITER QMONTH
  10. PALIVIZUMAB [Suspect]
     Active Substance: PALIVIZUMAB
     Dosage: 1 MILLILITER QMONTH
  11. PALIVIZUMAB [Suspect]
     Active Substance: PALIVIZUMAB
     Dosage: 1 MILLILITER QMONTH
  12. PALIVIZUMAB [Suspect]
     Active Substance: PALIVIZUMAB
     Dosage: 1 MILLILITER QMONTH
  13. PALIVIZUMAB [Suspect]
     Active Substance: PALIVIZUMAB
     Dosage: 1.15 MILLILITER QMONTH
  14. PALIVIZUMAB [Suspect]
     Active Substance: PALIVIZUMAB
     Dosage: 1.15 MILLILITER QMONTH
  15. PALIVIZUMAB [Suspect]
     Active Substance: PALIVIZUMAB
     Dosage: 1.15 MILLILITER QMONTH
  16. PALIVIZUMAB [Suspect]
     Active Substance: PALIVIZUMAB
     Dosage: 1.15 MILLILITER QMONTH
  17. PALIVIZUMAB [Suspect]
     Active Substance: PALIVIZUMAB
     Dosage: 1.05 MILLILITER QMONTH
  18. PALIVIZUMAB [Suspect]
     Active Substance: PALIVIZUMAB
     Dosage: 1.05 MILLILITER QMONTH
  19. PALIVIZUMAB [Suspect]
     Active Substance: PALIVIZUMAB
     Dosage: 1.05 MILLILITER QMONTH
  20. PALIVIZUMAB [Suspect]
     Active Substance: PALIVIZUMAB
     Dosage: 1.05 MILLILITER QMONTH
  21. CISAPRIDE [Concomitant]
     Active Substance: CISAPRIDE
     Indication: Gastrooesophageal reflux disease
     Dosage: 2 MILLILITER, Q8H
  22. CISAPRIDE [Concomitant]
     Active Substance: CISAPRIDE
     Dosage: 2 MILLILITER, Q8H
     Route: 065
  23. LORATADINE [Concomitant]
     Active Substance: LORATADINE
     Indication: Hypersensitivity
     Dosage: 2 MILLILITER, QD

REACTIONS (4)
  - Rash [Recovered/Resolved]
  - Injection site haemorrhage [Recovered/Resolved]
  - Milk allergy [Recovered/Resolved]
  - Pyrexia [Recovered/Resolved]
